FAERS Safety Report 14682044 (Version 2)
Quarter: 2018Q4

REPORT INFORMATION
  Report Type: Spontaneous
  Country: US (occurrence: US)
  Receive Date: 20180326
  Receipt Date: 20181017
  Transmission Date: 20190204
  Serious: Yes (Other)
  Sender: FDA-Public Use
  Company Number: US-PFIZER INC-2016424841

PATIENT
  Age: 57 Year
  Sex: Female
  Weight: 117.9 kg

DRUGS (22)
  1. CYCLOBENZAPRINE. [Concomitant]
     Active Substance: CYCLOBENZAPRINE
     Dosage: 10 MG, UNK(1 TAB. P. M)
  2. RESTORIL [Concomitant]
     Active Substance: TEMAZEPAM
     Dosage: 30 MG, 1X/DAY (NIGHTLY)
  3. PROTONIX [Concomitant]
     Active Substance: PANTOPRAZOLE SODIUM
     Dosage: 40 MG, DAILY
  4. BUPROPION HYDROCHLORIDE XL [Concomitant]
     Active Substance: BUPROPION HYDROCHLORIDE
     Dosage: 450 MG, DAILY (A.M)
  5. TYLENOL [Concomitant]
     Active Substance: ACETAMINOPHEN
     Dosage: 250 MG, UNK
     Route: 048
     Dates: start: 201810
  6. LYRICA [Suspect]
     Active Substance: PREGABALIN
     Indication: ARTHRITIS
     Dosage: 300 MG, ONCE A DAY (TWO 150 MG CAPSULES BY MOUTH AT NIGHT)
     Route: 048
  7. MOBIC [Concomitant]
     Active Substance: MELOXICAM
     Dosage: 15 MG, DAILY
  8. VITAMIN C [Concomitant]
     Active Substance: ASCORBIC ACID
     Dosage: 1000 MG, DAILY
  9. TYLENOL [Concomitant]
     Active Substance: ACETAMINOPHEN
     Dosage: 250 MG, UNK
  10. BUSPIRONE [Concomitant]
     Active Substance: BUSPIRONE HYDROCHLORIDE
     Dosage: 10 MG, 2X/DAY
  11. LEXAPRO [Concomitant]
     Active Substance: ESCITALOPRAM OXALATE
     Dosage: 40 MG, 1X/DAY
  12. LYRICA [Suspect]
     Active Substance: PREGABALIN
     Dosage: 150 MG, 1X/DAY (ONE 150 MG CAPSULE A DAY)
  13. EVENING PRIMROSE [Concomitant]
     Dosage: 2600 MG, UNK (P.M)
  14. AMITRIPTYLINE [Concomitant]
     Active Substance: AMITRIPTYLINE
     Dosage: 20 MG, 1X/DAY (NIGHTLY)
  15. ASPIRIN [ACETYLSALICYLIC ACID] [Concomitant]
     Active Substance: ASPIRIN
     Dosage: 250 MG, UNK
     Route: 048
  16. LYRICA [Suspect]
     Active Substance: PREGABALIN
     Indication: FIBROMYALGIA
     Dosage: 150 MG, 2X/DAY (BID)
     Route: 048
  17. L THYROXIN [Concomitant]
     Active Substance: LEVOTHYROXINE SODIUM
     Dosage: 75 MG, UNK
  18. BABY ASPIRIN [Concomitant]
     Active Substance: ASPIRIN
     Dosage: UNK (P.M)
  19. LISINOPRIL /HCTZ [Concomitant]
     Dosage: UNK (HYDROCHLOROTHIAZIDE- 12.5 MG/ LISINOPRIL- 10 MG)
  20. CALCIUM [Concomitant]
     Active Substance: CALCIUM
     Dosage: UNK, 1X/DAY
  21. VITAMIN B COMPLEX [Concomitant]
     Active Substance: CYANOCOBALAMIN\DEXPANTHENOL\NIACINAMIDE\PYRIDOXINE HYDROCHLORIDE\RIBOFLAVIN 5^-PHOSPHATE SODIUM\THIAMINE HYDROCHLORIDE\VITAMIN B COMPLEX
     Dosage: UNK
  22. AMITIZA [Concomitant]
     Active Substance: LUBIPROSTONE
     Dosage: 21 UG, AS NEEDED

REACTIONS (6)
  - Intentional product misuse [Unknown]
  - Decreased appetite [Unknown]
  - Drug dependence [Unknown]
  - Feeling abnormal [Unknown]
  - Malaise [Not Recovered/Not Resolved]
  - Somnolence [Unknown]

NARRATIVE: CASE EVENT DATE: 20181004
